FAERS Safety Report 24122908 (Version 1)
Quarter: 2024Q3

REPORT INFORMATION
  Report Type: Spontaneous
  Country: FR (occurrence: FR)
  Receive Date: 20240723
  Receipt Date: 20240723
  Transmission Date: 20241016
  Serious: No
  Sender: ALKEM
  Company Number: FR-ALKEM LABORATORIES LIMITED-FR-ALKEM-2023-07577

PATIENT
  Age: 58 Year
  Sex: Female

DRUGS (4)
  1. DRONABINOL [Suspect]
     Active Substance: DRONABINOL
     Indication: Neuralgia
     Dosage: 10 MILLIGRAM, BID (SOFT CAPSULE MOLLE) SOFT CAPSULE
     Route: 048
     Dates: start: 20230327, end: 20230403
  2. DRONABINOL [Suspect]
     Active Substance: DRONABINOL
     Dosage: UNK (SOFT CAPSULE MOLLE) (REINTRODUCED DOSE)
     Route: 065
     Dates: start: 20230612
  3. TRAMADOL [Concomitant]
     Active Substance: TRAMADOL\TRAMADOL HYDROCHLORIDE
     Indication: Neuralgia
     Dosage: 350 MILLIGRAM, QD (100-150-100)
     Route: 065
  4. VENLAFAXINE [Concomitant]
     Active Substance: VENLAFAXINE HYDROCHLORIDE
     Indication: Neuralgia
     Dosage: 37.5 MILLIGRAM, QD
     Route: 065

REACTIONS (2)
  - Vertigo CNS origin [Recovered/Resolved]
  - Therapeutic response decreased [Unknown]

NARRATIVE: CASE EVENT DATE: 20230327
